FAERS Safety Report 6935868-8 (Version None)
Quarter: 2010Q3

REPORT INFORMATION
  Report Type: 
  Country: None (occurrence: None)
  Receive Date: 20100823
  Receipt Date: 20100816
  Transmission Date: 20110219
  Serious: Yes (Other)
  Sender: FDA-Public Use
  Company Number: JP-ASTRAZENECA-2010SE34513

PATIENT
  Age: 42 Year
  Sex: Male
  Weight: 101 kg

DRUGS (1)
  1. AMIAS [Suspect]
     Indication: HYPERTENSION
     Route: 048
     Dates: start: 20091117, end: 20100715

REACTIONS (3)
  - DYSPNOEA [None]
  - LUNG INFECTION [None]
  - WEIGHT INCREASED [None]
